FAERS Safety Report 5741788-7 (Version None)
Quarter: 2008Q2

REPORT INFORMATION
  Report Type: 
  Country: None (occurrence: None)
  Receive Date: 20080519
  Receipt Date: 20080509
  Transmission Date: 20081010
  Serious: Yes (Hospitalization)
  Sender: FDA-Public Use
  Company Number: BR-BAYER-200813923LA

PATIENT
  Age: 35 Year
  Sex: Female

DRUGS (1)
  1. BETAFERON [Suspect]
     Indication: MULTIPLE SCLEROSIS
     Dosage: UNIT DOSE: 8 MIU
     Route: 058
     Dates: start: 20070301

REACTIONS (6)
  - HALLUCINATION [None]
  - INSOMNIA [None]
  - MENTAL DISORDER [None]
  - MOBILITY DECREASED [None]
  - MULTIPLE SCLEROSIS [None]
  - ORAL INTAKE REDUCED [None]
